FAERS Safety Report 18608690 (Version 1)
Quarter: 2020Q4

REPORT INFORMATION
  Report Type: Spontaneous
  Country: FR (occurrence: FR)
  Receive Date: 20201213
  Receipt Date: 20201213
  Transmission Date: 20210114
  Serious: Yes (Other)
  Sender: FDA-Public Use
  Company Number: NVSC2020FR323788

PATIENT
  Age: 27 Year
  Sex: Female
  Weight: 92 kg

DRUGS (2)
  1. METRONIDAZOLE. [Suspect]
     Active Substance: METRONIDAZOLE
     Indication: TOOTH ABSCESS
     Dosage: 3 DF, QD
     Route: 048
     Dates: start: 20201121, end: 20201123
  2. SPIRAMYCIN [Suspect]
     Active Substance: SPIRAMYCIN
     Indication: TOOTH ABSCESS
     Dosage: 3 DF, QD
     Route: 048
     Dates: start: 20201121, end: 20201123

REACTIONS (4)
  - Dizziness [Recovering/Resolving]
  - Fatigue [Recovering/Resolving]
  - Nausea [Recovering/Resolving]
  - Rash [Recovering/Resolving]

NARRATIVE: CASE EVENT DATE: 20201123
